FAERS Safety Report 8220864-3 (Version None)
Quarter: 2012Q1

REPORT INFORMATION
  Report Type: 
  Country: None (occurrence: None)
  Receive Date: 20120320
  Receipt Date: 20120309
  Transmission Date: 20120608
  Serious: Yes (Hospitalization)
  Sender: FDA-Public Use
  Company Number: FR-GENZYME-CLOF-1002074

PATIENT
  Sex: Female
  Weight: 78 kg

DRUGS (11)
  1. EVOLTRA [Suspect]
     Indication: MYELODYSPLASTIC SYNDROME TRANSFORMATION
     Dosage: 19 MG, QD, CYCLE 2
     Route: 042
     Dates: start: 20111227, end: 20111231
  2. EVOLTRA [Suspect]
     Dosage: UNK, CYCLE 1
     Route: 065
     Dates: start: 20111109
  3. NOVORAPID [Concomitant]
     Indication: DIABETES MELLITUS
     Dosage: 36 UI, QD
     Route: 058
     Dates: start: 20111109
  4. NICARDIPINE HYDROCHLORIDE [Concomitant]
     Indication: HYPERTENSION
     Dosage: 150 MG, QD
     Route: 048
     Dates: start: 20120112
  5. SECTRAL [Concomitant]
     Indication: HYPERTENSION
     Dosage: 400 MG, QD
     Route: 048
  6. HYPERIUM [Concomitant]
     Indication: HYPERTENSION
     Dosage: 2 CP, QD
     Route: 048
  7. OMEPRAZOLE [Concomitant]
     Indication: ANTACID THERAPY
     Dosage: 40 MG, QD
     Route: 042
     Dates: start: 20120112, end: 20120210
  8. LANTUS [Concomitant]
     Indication: DIABETES MELLITUS
     Dosage: 34 UI, QD
     Route: 058
     Dates: start: 20111109
  9. VALACYCLOVIR HYDROCHLORIDE [Concomitant]
     Indication: PROPHYLAXIS
     Dosage: 500 MG, QD
     Route: 048
  10. NOXAFIL [Concomitant]
     Indication: PROPHYLAXIS
     Dosage: 600 MG, QD
     Route: 048
     Dates: start: 20111115, end: 20120130
  11. PRIMPERAN TAB [Concomitant]
     Indication: ANTIEMETIC SUPPORTIVE CARE
     Dosage: 3 AMP, QD
     Route: 042
     Dates: start: 20120112, end: 20120130

REACTIONS (6)
  - LUNG NEOPLASM [None]
  - DYSPNOEA [None]
  - COUGH [None]
  - FUNGAL INFECTION [None]
  - LUNG DISORDER [None]
  - PYREXIA [None]
